FAERS Safety Report 7385228-3 (Version None)
Quarter: 2011Q1

REPORT INFORMATION
  Report Type: 
  Country: None (occurrence: None)
  Receive Date: 20110330
  Receipt Date: 20110318
  Transmission Date: 20110831
  Serious: Yes (Disabling)
  Sender: FDA-Public Use
  Company Number: US-MERCK-1103USA02596

PATIENT
  Sex: Female

DRUGS (1)
  1. INVANZ [Suspect]
     Route: 065

REACTIONS (16)
  - NAUSEA [None]
  - PERIPHERAL NERVE INJURY [None]
  - SENSORY LOSS [None]
  - NIGHTMARE [None]
  - DIZZINESS [None]
  - MUSCLE INJURY [None]
  - LACERATION [None]
  - DECUBITUS ULCER [None]
  - ASTHENIA [None]
  - PAIN [None]
  - PERIPHERAL COLDNESS [None]
  - MUSCULOSKELETAL PAIN [None]
  - TEMPERATURE INTOLERANCE [None]
  - LIMB INJURY [None]
  - NECK PAIN [None]
  - GRIP STRENGTH DECREASED [None]
